FAERS Safety Report 7243535-9 (Version None)
Quarter: 2011Q1

REPORT INFORMATION
  Report Type: 
  Country: None (occurrence: None)
  Receive Date: 20110125
  Receipt Date: 20110118
  Transmission Date: 20110831
  Serious: Yes (Other)
  Sender: FDA-Public Use
  Company Number: US-US-EMD SERONO, INC.-7000948

PATIENT
  Sex: Female

DRUGS (1)
  1. REBIF [Suspect]
     Indication: PRODUCT USED FOR UNKNOWN INDICATION
     Route: 058
     Dates: start: 20090602

REACTIONS (5)
  - HEADACHE [None]
  - OPTIC NEURITIS [None]
  - BODY TEMPERATURE INCREASED [None]
  - OPTIC NERVE INJURY [None]
  - CENTRAL NERVOUS SYSTEM LESION [None]
